FAERS Safety Report 8800911 (Version 2)
Quarter: 2012Q4

REPORT INFORMATION
  Report Type: Report from Study
  Country: AU (occurrence: AU)
  Receive Date: 20120920
  Receipt Date: 20121011
  Transmission Date: 20130627
  Serious: Yes (Other)
  Sender: FDA-Public Use
  Company Number: AU-ROCHE-1132938

PATIENT
  Sex: Female

DRUGS (2)
  1. TOCILIZUMAB [Suspect]
     Indication: RHEUMATOID ARTHRITIS
     Route: 042
     Dates: start: 20120831
  2. PANADEINE FORTE [Concomitant]
     Indication: PAIN
     Dosage: 500/30
     Route: 048

REACTIONS (3)
  - Pain [Not Recovered/Not Resolved]
  - Mania [Not Recovered/Not Resolved]
  - Joint injury [Not Recovered/Not Resolved]
